FAERS Safety Report 20331521 (Version 1)
Quarter: 2022Q1

REPORT INFORMATION
  Report Type: Spontaneous
  Country: US (occurrence: US)
  Receive Date: 20220113
  Receipt Date: 20220113
  Transmission Date: 20220423
  Serious: No
  Sender: FDA-Public Use
  Company Number: US-ELI_LILLY_AND_COMPANY-US202201003741

PATIENT
  Age: 34 Year
  Sex: Male

DRUGS (1)
  1. TALTZ [Suspect]
     Active Substance: IXEKIZUMAB
     Indication: Product used for unknown indication
     Dosage: 160 MG, OTHER (LOADING DOSE)
     Route: 058
     Dates: start: 202109

REACTIONS (2)
  - Injection site urticaria [Unknown]
  - Injection site reaction [Unknown]

NARRATIVE: CASE EVENT DATE: 20210916
